FAERS Safety Report 24121721 (Version 2)
Quarter: 2025Q2

REPORT INFORMATION
  Report Type: Spontaneous
  Country: IT (occurrence: IT)
  Receive Date: 20240722
  Receipt Date: 20250528
  Transmission Date: 20250716
  Serious: Yes (Other)
  Sender: TEVA
  Company Number: None

PATIENT
  Age: 73 Year
  Sex: Male
  Weight: 73 kg

DRUGS (3)
  1. EPIRUBICIN [Suspect]
     Active Substance: EPIRUBICIN
     Indication: Soft tissue neoplasm
     Route: 042
     Dates: start: 20240603, end: 20240604
  2. IFOSFAMIDE [Suspect]
     Active Substance: IFOSFAMIDE
     Indication: Soft tissue neoplasm
     Route: 042
     Dates: start: 20240603, end: 20240609
  3. MESNA [Suspect]
     Active Substance: MESNA
     Indication: Prophylaxis
     Route: 042
     Dates: start: 20240603, end: 20240609

REACTIONS (1)
  - Neutropenia [Recovered/Resolved]

NARRATIVE: CASE EVENT DATE: 20240619
